FAERS Safety Report 17808112 (Version 1)
Quarter: 2020Q2

REPORT INFORMATION
  Report Type: Spontaneous
  Country: SE (occurrence: SE)
  Receive Date: 20200520
  Receipt Date: 20200520
  Transmission Date: 20200714
  Serious: Yes (Hospitalization)
  Sender: FDA-Public Use
  Company Number: SE-MYLANLABS-2020M1048761

PATIENT
  Sex: Female

DRUGS (3)
  1. COCILLANA-ETYFIN, ORAL L?SNING [Suspect]
     Active Substance: ETHYLMORPHINE HYDROCHLORIDE\HERBALS
     Indication: COUGH
     Dosage: 5-10ML 1-3 GGR/DYGN VB
     Route: 048
  2. K?VEPENIN 1 G FILMDRAGERADE TABLETTER [Suspect]
     Active Substance: PENICILLIN V POTASSIUM
     Indication: TONSILLITIS
     Dosage: 1G X3
  3. LERGIGAN 25 MG FILMDRAGERADE TABLETTER [Suspect]
     Active Substance: PROMETHAZINE HYDROCHLORIDE
     Indication: PRODUCT USED FOR UNKNOWN INDICATION
     Dosage: 25 MG X1
     Route: 048

REACTIONS (1)
  - Acute hepatic failure [Recovered/Resolved]
